FAERS Safety Report 11090103 (Version 1)
Quarter: 2015Q2

REPORT INFORMATION
  Report Type: Spontaneous
  Country: US (occurrence: None)
  Receive Date: 20150504
  Receipt Date: 20150504
  Transmission Date: 20150821
  Serious: Yes (Hospitalization)
  Sender: FDA-Public Use
  Company Number: None

PATIENT
  Age: 59 Year
  Sex: Male

DRUGS (1)
  1. KETOROLAC TROMETHAMINE. [Suspect]
     Active Substance: KETOROLAC TROMETHAMINE
     Indication: SURGERY
     Dates: start: 20100331, end: 20100331

REACTIONS (4)
  - Wheezing [None]
  - Cough [None]
  - Dyspnoea [None]
  - Asthma [None]

NARRATIVE: CASE EVENT DATE: 20100331
